FAERS Safety Report 24608292 (Version 1)
Quarter: 2024Q4

REPORT INFORMATION
  Report Type: Spontaneous
  Country: ES (occurrence: ES)
  Receive Date: 20241112
  Receipt Date: 20241112
  Transmission Date: 20250114
  Serious: Yes (Death, Hospitalization)
  Sender: PFIZER
  Company Number: ES-ROCHE-3457508

PATIENT
  Age: 69 Year
  Sex: Male
  Weight: 79 kg

DRUGS (19)
  1. CARBOPLATIN [Suspect]
     Active Substance: CARBOPLATIN
     Indication: Small cell lung cancer extensive stage
     Dosage: 522.96 MG, EVERY 3 WEEKS
     Route: 042
     Dates: start: 20230830
  2. CARBOPLATIN [Suspect]
     Active Substance: CARBOPLATIN
     Dosage: 484.42 MG, EVERY 3 WEEKS
     Route: 042
     Dates: start: 20231031
  3. ETOPOSIDE [Suspect]
     Active Substance: ETOPOSIDE
     Indication: Small cell lung cancer extensive stage
     Dosage: 193.5 MG
     Route: 042
     Dates: start: 20230830
  4. ETOPOSIDE [Suspect]
     Active Substance: ETOPOSIDE
     Dosage: 193.5 MG
     Route: 042
     Dates: start: 20231103
  5. ATEZOLIZUMAB [Suspect]
     Active Substance: ATEZOLIZUMAB
     Indication: Small cell lung cancer extensive stage
     Dosage: 1200 MG, EVERY 3 WEEKS
     Route: 042
     Dates: start: 20230830
  6. ATEZOLIZUMAB [Suspect]
     Active Substance: ATEZOLIZUMAB
     Dosage: 1200 MG, EVERY 3 WEEKS
     Route: 042
     Dates: start: 20231031
  7. SIMVASTATIN [Concomitant]
     Active Substance: SIMVASTATIN
     Indication: Dyslipidaemia
  8. AMLODIPINE [Concomitant]
     Active Substance: AMLODIPINE BESYLATE
     Indication: Hypertension
  9. ALLOPURINOL [Concomitant]
     Active Substance: ALLOPURINOL
     Indication: Hyperuricaemia
  10. POLYETHYLENE GLYCOLS [Concomitant]
     Active Substance: POLYETHYLENE GLYCOLS
     Indication: Constipation prophylaxis
     Dates: start: 20231114, end: 20231116
  11. EPLERENONE [Concomitant]
     Active Substance: EPLERENONE
     Indication: Hypertension
  12. TAMSULOSIN [Concomitant]
     Active Substance: TAMSULOSIN
     Indication: Hyperuricaemia
     Dates: start: 20231113, end: 20231117
  13. ENOXAPARIN [Concomitant]
     Active Substance: ENOXAPARIN
     Indication: Thrombosis prophylaxis
     Dates: start: 20231115, end: 20231116
  14. CAPTOPRIL [Concomitant]
     Active Substance: CAPTOPRIL
     Indication: Hypertension
     Dates: start: 20231114, end: 20231114
  15. OMEPRAZOLE [Concomitant]
     Active Substance: OMEPRAZOLE
     Indication: Gastritis prophylaxis
     Dates: start: 20231112, end: 20231117
  16. POTASSIUM [Concomitant]
     Active Substance: POTASSIUM
     Indication: Prophylaxis
     Dosage: UNK
     Dates: start: 20231111, end: 20231113
  17. POTASSIUM [Concomitant]
     Active Substance: POTASSIUM
     Dosage: UNK
     Dates: start: 20231117, end: 20231117
  18. MAGNESIUM [Concomitant]
     Active Substance: MAGNESIUM
     Indication: Prophylaxis
     Dosage: UNK
     Dates: start: 20231111, end: 20231113
  19. HUMAN RED BLOOD CELL [Concomitant]
     Active Substance: HUMAN RED BLOOD CELL
     Indication: Anaemia
     Dosage: UNK
     Dates: start: 20231111, end: 20231111

REACTIONS (2)
  - Death [Fatal]
  - Febrile neutropenia [Recovered/Resolved]

NARRATIVE: CASE EVENT DATE: 20231111
